FAERS Safety Report 7886607-8 (Version None)
Quarter: 2011Q4

REPORT INFORMATION
  Report Type: 
  Country: None (occurrence: None)
  Receive Date: 20111102
  Receipt Date: 20110707
  Transmission Date: 20120403
  Serious: No
  Sender: FDA-Public Use
  Company Number: US-AMGEN-USASP2011034563

PATIENT
  Age: 64 Year
  Sex: Female

DRUGS (8)
  1. CALCIUM [Concomitant]
     Dosage: UNK
  2. LEFLUNOMIDE [Concomitant]
     Dosage: UNK
  3. ZYRTEC [Concomitant]
  4. ZETIA [Concomitant]
     Dosage: UNK
  5. FOLIC ACID [Concomitant]
     Dosage: UNK
  6. GLUCOSAMINE [Concomitant]
     Dosage: UNK
  7. PROTONIX [Concomitant]
     Dosage: UNK
  8. ENBREL [Suspect]
     Indication: RHEUMATOID ARTHRITIS
     Dosage: 50 MG, QWK
     Dates: start: 20110609

REACTIONS (4)
  - INJECTION SITE ERYTHEMA [None]
  - ANXIETY [None]
  - INJECTION SITE REACTION [None]
  - INJECTION SITE PRURITUS [None]
